FAERS Safety Report 7951360-6 (Version None)
Quarter: 2011Q4

REPORT INFORMATION
  Report Type: 
  Country: None (occurrence: None)
  Receive Date: 20111201
  Receipt Date: 20111122
  Transmission Date: 20120403
  Serious: No
  Sender: FDA-Public Use
  Company Number: US-BAYER-2011-112982

PATIENT
  Sex: Female

DRUGS (1)
  1. BEYAZ [Suspect]

REACTIONS (1)
  - HYPOMENORRHOEA [None]
